FAERS Safety Report 11142084 (Version 1)
Quarter: 2015Q2

REPORT INFORMATION
  Report Type: Spontaneous
  Country: US (occurrence: US)
  Receive Date: 20150527
  Receipt Date: 20150527
  Transmission Date: 20150821
  Serious: Yes (Other)
  Sender: FDA-Public Use
  Company Number: US-BANPHARM-20153925

PATIENT
  Age: 47 Year
  Sex: Male

DRUGS (2)
  1. NAPROXEN SODIUM 220 MG [Suspect]
     Active Substance: NAPROXEN SODIUM
     Dosage: UNKNOWN
     Route: 048
     Dates: start: 201504, end: 201504
  2. NAPROXEN SODIUM 220 MG [Suspect]
     Active Substance: NAPROXEN SODIUM
     Dosage: 1 DF, ONCE,
     Route: 048
     Dates: start: 20150512, end: 20150512

REACTIONS (7)
  - Loss of consciousness [Recovered/Resolved]
  - Dizziness [Not Recovered/Not Resolved]
  - Hyperhidrosis [Not Recovered/Not Resolved]
  - Blood pressure increased [Not Recovered/Not Resolved]
  - Disorientation [Not Recovered/Not Resolved]
  - Palpitations [Not Recovered/Not Resolved]
  - Expired product administered [Not Recovered/Not Resolved]

NARRATIVE: CASE EVENT DATE: 201504
